FAERS Safety Report 6741667-2 (Version None)
Quarter: 2010Q2

REPORT INFORMATION
  Report Type: 
  Country: None (occurrence: None)
  Receive Date: 20100526
  Receipt Date: 20100520
  Transmission Date: 20101027
  Serious: Yes (Death)
  Sender: FDA-Public Use
  Company Number: US-AMGEN-KDC407299

PATIENT
  Sex: Male

DRUGS (4)
  1. ENBREL [Suspect]
     Indication: PSORIASIS
     Route: 058
     Dates: start: 20071016
  2. BENADRYL [Concomitant]
     Route: 048
     Dates: start: 20080228
  3. TYLENOL (CAPLET) [Concomitant]
     Route: 048
     Dates: start: 20080228
  4. PROVENTIL [Concomitant]
     Route: 055
     Dates: start: 20050501

REACTIONS (1)
  - NEOPLASM MALIGNANT [None]
